FAERS Safety Report 17870685 (Version 1)
Quarter: 2020Q2

REPORT INFORMATION
  Report Type: Spontaneous
  Country: US (occurrence: US)
  Receive Date: 20200605
  Receipt Date: 20200605
  Transmission Date: 20200714
  Serious: Yes (Hospitalization)
  Sender: FDA-Public Use
  Company Number: None

PATIENT
  Sex: Male

DRUGS (29)
  1. LUPRON DEPOT [Suspect]
     Active Substance: LEUPROLIDE ACETATE
     Dosage: Q 6 MONTHS
     Route: 030
     Dates: start: 20190125, end: 202003
  2. ESOMEPRA MAGNESIUM CAPSULE [Concomitant]
  3. PREDNISONE. [Concomitant]
     Active Substance: PREDNISONE
  4. AZELASTINE. [Concomitant]
     Active Substance: AZELASTINE HYDROCHLORIDE
  5. BACLOFEN. [Concomitant]
     Active Substance: BACLOFEN
  6. KETOROFAC [Concomitant]
  7. OXYCODONE [Concomitant]
     Active Substance: OXYCODONE
  8. POT CL [Concomitant]
  9. VENTOLIN HFA AERESOL [Concomitant]
  10. OXYCODONE AND ACETAMINOPHEN [Concomitant]
     Active Substance: ACETAMINOPHEN\OXYCODONE HYDROCHLORIDE
  11. AMOXICILLIN. [Concomitant]
     Active Substance: AMOXICILLIN
  12. AZITHROMYCIN ANHYDROUS. [Concomitant]
     Active Substance: AZITHROMYCIN ANHYDROUS
  13. ABIRATTERONE ACETATE [Concomitant]
  14. FLUCONAZOLE. [Concomitant]
     Active Substance: FLUCONAZOLE
  15. SOTALOL HCL [Concomitant]
     Active Substance: SOTALOL
  16. NYSTATIN. [Concomitant]
     Active Substance: NYSTATIN
  17. ERLEADA [Suspect]
     Active Substance: APALUTAMIDE
     Indication: PROSTATE CANCER
     Route: 048
     Dates: start: 202003
  18. SYNTHROID [Concomitant]
     Active Substance: LEVOTHYROXINE SODIUM
  19. BENZONATATE. [Concomitant]
     Active Substance: BENZONATATE
  20. DEXAMETHASON [Concomitant]
     Active Substance: DEXAMETHASONE
  21. DOXYCYCL HYC [Concomitant]
  22. POLYETH GLYC [Concomitant]
     Active Substance: POLYETHYLENE GLYCOLS
  23. HYDROCHLOROT [Concomitant]
     Active Substance: HYDROCHLOROTHIAZIDE
  24. OXYBUTYNIN. [Concomitant]
     Active Substance: OXYBUTYNIN CHLORIDE
  25. TAMSULOSIN [Concomitant]
     Active Substance: TAMSULOSIN
  26. TRAMADOL. [Concomitant]
     Active Substance: TRAMADOL
  27. LACTULOSE. [Concomitant]
     Active Substance: LACTULOSE
  28. LEVOTHYROXIN [Concomitant]
     Active Substance: LEVOTHYROXINE
  29. AMOX/K CLAV [Concomitant]
     Active Substance: AMOXICILLIN\CLAVULANATE POTASSIUM

REACTIONS (3)
  - Asthenia [None]
  - Hyperhidrosis [None]
  - Pneumonia [None]
